FAERS Safety Report 9215213 (Version 1)
Quarter: 2013Q2

REPORT INFORMATION
  Report Type: Spontaneous
  Country: FR (occurrence: FR)
  Receive Date: 20130405
  Receipt Date: 20130405
  Transmission Date: 20140414
  Serious: Yes (Other)
  Sender: FDA-Public Use
  Company Number: FR-PFIZER INC-2013099870

PATIENT
  Age: 15 Year
  Sex: Female

DRUGS (1)
  1. ADVIL [Suspect]
     Indication: HEADACHE
     Dosage: 400 MG, SINGLE
     Route: 048

REACTIONS (4)
  - Erythema [Unknown]
  - Face oedema [Unknown]
  - Cough [Unknown]
  - Asthma [Unknown]
